FAERS Safety Report 7014308-7 (Version None)
Quarter: 2010Q3

REPORT INFORMATION
  Report Type: 
  Country: None (occurrence: None)
  Receive Date: 20100924
  Receipt Date: 20100924
  Transmission Date: 20110219
  Serious: Yes (Other)
  Sender: FDA-Public Use
  Company Number: None

PATIENT
  Age: 19 Year
  Sex: Female
  Weight: 47.5 kg

DRUGS (2)
  1. TIGECYCLINE [Suspect]
     Indication: INFECTION
     Dosage: 100MG ONCE IV
     Route: 042
     Dates: start: 20100904, end: 20100904
  2. TIGECYCLINE [Suspect]
     Indication: INFECTION
     Dosage: 50MG Q12HR IV
     Route: 042
     Dates: start: 20100904, end: 20100920

REACTIONS (1)
  - BLOOD UREA INCREASED [None]
